FAERS Safety Report 15855000 (Version 2)
Quarter: 2019Q1

REPORT INFORMATION
  Report Type: Report from Study
  Country: ZA (occurrence: ZA)
  Receive Date: 20190122
  Receipt Date: 20190320
  Transmission Date: 20190417
  Serious: Yes (Hospitalization)
  Sender: FDA-Public Use
  Company Number: ZA-GILEAD-2019-0384752

PATIENT
  Age: 18 Year
  Sex: Female

DRUGS (4)
  1. EMTRICITABINE/TENOFOVIR DISOPROXIL FUMARATE [Suspect]
     Active Substance: EMTRICITABINE\TENOFOVIR DISOPROXIL FUMARATE
     Dosage: 500 MG, QD
     Route: 065
     Dates: start: 20181212
  2. FERROUS SULPHATE [FERROUS SULFATE] [Concomitant]
     Active Substance: FERROUS SULFATE
  3. EMTRICITABINE/TENOFOVIR DISOPROXIL FUMARATE [Suspect]
     Active Substance: EMTRICITABINE\TENOFOVIR DISOPROXIL FUMARATE
     Indication: PROPHYLAXIS AGAINST HIV INFECTION
     Dosage: 500 MG, QD
     Route: 065
     Dates: start: 20180921, end: 20181202
  4. FOLIC ACID. [Concomitant]
     Active Substance: FOLIC ACID

REACTIONS (4)
  - Maternal exposure during pregnancy [Not Recovered/Not Resolved]
  - Vaginal discharge [Recovered/Resolved]
  - Urinary tract infection [Recovered/Resolved]
  - Gastritis [Recovered/Resolved]

NARRATIVE: CASE EVENT DATE: 20180921
